FAERS Safety Report 12444855 (Version 2)
Quarter: 2023Q1

REPORT INFORMATION
  Report Type: Spontaneous
  Country: FR (occurrence: FR)
  Receive Date: 20160607
  Receipt Date: 20230312
  Transmission Date: 20230418
  Serious: Yes (Death, Hospitalization)
  Sender: FDA-Public Use
  Company Number: PHHY2016FR073482

PATIENT
  Age: 16 Year
  Sex: Female
  Weight: 70 kg

DRUGS (4)
  1. PREDNISONE [Suspect]
     Active Substance: PREDNISONE
     Indication: Product used for unknown indication
     Dosage: 20 TABLETS OF 20 MG
     Route: 065
     Dates: start: 20130426, end: 20130426
  2. IBUPROFEN [Suspect]
     Active Substance: IBUPROFEN
     Indication: Product used for unknown indication
     Dosage: ONE BLISTER AT 400 MG
     Route: 065
     Dates: start: 20130426, end: 20130426
  3. FENOFIBRATE [Suspect]
     Active Substance: FENOFIBRATE
     Indication: Product used for unknown indication
     Dosage: UNK, A BLISTER
     Route: 065
     Dates: start: 20130426, end: 20130426
  4. COLCHICINE [Suspect]
     Active Substance: COLCHICINE
     Indication: Familial mediterranean fever
     Dosage: 50-60 TABLETS (IE A SUPPOSED INGESTED DOSE OF 0.8-0.9 MG/KG)
     Route: 065
     Dates: start: 20130426, end: 20130426

REACTIONS (15)
  - Disseminated intravascular coagulation [Fatal]
  - Anuria [Fatal]
  - Somnolence [Fatal]
  - Leukocytosis [Fatal]
  - Respiratory distress [Fatal]
  - Multiple organ dysfunction syndrome [Fatal]
  - Acute kidney injury [Fatal]
  - Cardiogenic shock [Fatal]
  - Haemorrhage [Fatal]
  - Metabolic acidosis [Fatal]
  - Intentional overdose [Unknown]
  - Thrombocytopenia [Unknown]
  - Hepatic cytolysis [Unknown]
  - Hypotension [Unknown]
  - Vomiting [Unknown]

NARRATIVE: CASE EVENT DATE: 20130426
